FAERS Safety Report 16285907 (Version 1)
Quarter: 2019Q2

REPORT INFORMATION
  Report Type: Spontaneous
  Country: US (occurrence: US)
  Receive Date: 20190506
  Receipt Date: 20190506
  Transmission Date: 20190711
  Serious: Yes (Life-Threatening, Hospitalization, Disabling, Other)
  Sender: FDA-Public Use
  Company Number: None

PATIENT
  Age: 56 Year
  Sex: Female
  Weight: 117.93 kg

DRUGS (12)
  1. ATORVASTATIN [Concomitant]
     Active Substance: ATORVASTATIN
  2. ZOLOFT [Concomitant]
     Active Substance: SERTRALINE HYDROCHLORIDE
  3. PLAQUINEL [Concomitant]
  4. RANITADINE [Concomitant]
  5. LEFLUNOMIDE. [Concomitant]
     Active Substance: LEFLUNOMIDE
  6. CARVEDILOL. [Concomitant]
     Active Substance: CARVEDILOL
  7. NORCO [Concomitant]
     Active Substance: ACETAMINOPHEN\HYDROCODONE BITARTRATE
  8. LOSARTAN. [Suspect]
     Active Substance: LOSARTAN
     Indication: HYPERTENSION
     Route: 048
     Dates: start: 20030106, end: 20190202
  9. PLAVIX [Concomitant]
     Active Substance: CLOPIDOGREL BISULFATE
  10. GABAPENTIN. [Concomitant]
     Active Substance: GABAPENTIN
  11. CYCLOBENZAPRINE. [Concomitant]
     Active Substance: CYCLOBENZAPRINE
  12. CENTRUM OVER 50 [Concomitant]

REACTIONS (11)
  - Asthenia [None]
  - Facial paralysis [None]
  - Device malfunction [None]
  - Visual impairment [None]
  - Blindness transient [None]
  - Tongue biting [None]
  - Road traffic accident [None]
  - Haemorrhage [None]
  - Transient ischaemic attack [None]
  - Chronic cheek biting [None]
  - Peroneal nerve palsy [None]

NARRATIVE: CASE EVENT DATE: 20160221
